FAERS Safety Report 6900305-6 (Version None)
Quarter: 2010Q3

REPORT INFORMATION
  Report Type: 
  Country: None (occurrence: None)
  Receive Date: 20100803
  Receipt Date: 20100720
  Transmission Date: 20110219
  Serious: Yes (Hospitalization)
  Sender: FDA-Public Use
  Company Number: PHHY2010US46546

PATIENT
  Sex: Female
  Weight: 88 kg

DRUGS (3)
  1. TEKTURNA HCT [Suspect]
     Indication: HYPERTENSION
     Dosage: 150/12.5 MG
     Route: 048
     Dates: start: 20100201, end: 20100501
  2. FERROUS SULFATE [Concomitant]
     Dosage: 325 MG, DAILY
     Route: 048
     Dates: start: 20100501
  3. VITAMIN D3 [Concomitant]
     Dosage: 1000 U, DAILY
     Route: 048
     Dates: start: 20091201

REACTIONS (4)
  - BLOOD UREA INCREASED [None]
  - HYPOTENSION [None]
  - PARAESTHESIA [None]
  - UROSEPSIS [None]
